FAERS Safety Report 9011219 (Version 2)
Quarter: 2013Q1

REPORT INFORMATION
  Report Type: Spontaneous
  Country: JP (occurrence: JP)
  Receive Date: 20130109
  Receipt Date: 20130122
  Transmission Date: 20140127
  Serious: Yes (Hospitalization)
  Sender: FDA-Public Use
  Company Number: JP-WATSON-2012-23098

PATIENT
  Age: 64 Year
  Sex: Male

DRUGS (2)
  1. RAPAFLO (WATSON LABORATORIES) [Suspect]
     Indication: BENIGN PROSTATIC HYPERPLASIA
     Dosage: 8 MG, DAILY
     Route: 048
     Dates: start: 20121026
  2. ANTIBIOTIC /00011701/ [Concomitant]
     Indication: PROSTATITIS
     Dosage: UNK
     Route: 065

REACTIONS (1)
  - Prostatitis [Recovered/Resolved]
